FAERS Safety Report 10542046 (Version 2)
Quarter: 2019Q1

REPORT INFORMATION
  Report Type: Spontaneous
  Country: GR (occurrence: GR)
  Receive Date: 20141024
  Receipt Date: 20190204
  Transmission Date: 20190417
  Serious: Yes (Hospitalization, Other)
  Sender: FDA-Public Use
  Company Number: GR-PFIZER INC-2014288878

PATIENT
  Age: 34 Year
  Sex: Male

DRUGS (2)
  1. CHAMPIX [Suspect]
     Active Substance: VARENICLINE TARTRATE
     Dosage: MAXIMUM RECOMMENDED DOSE
     Dates: start: 200910
  2. CHAMPIX [Suspect]
     Active Substance: VARENICLINE TARTRATE
     Indication: SMOKING CESSATION THERAPY
     Dosage: UNK
     Dates: start: 200910, end: 200910

REACTIONS (12)
  - Oesophagitis [Unknown]
  - Vomiting [Unknown]
  - Haemorrhage [Unknown]
  - Duodenitis [Unknown]
  - Dysphagia [Unknown]
  - Colitis ulcerative [Not Recovered/Not Resolved]
  - Diarrhoea haemorrhagic [Unknown]
  - Anal fissure [Unknown]
  - Abdominal pain upper [Unknown]
  - Gastric mucosal lesion [Unknown]
  - Hyperplasia [Unknown]
  - Adjustment disorder with depressed mood [Unknown]

NARRATIVE: CASE EVENT DATE: 2009
